FAERS Safety Report 24967720 (Version 1)
Quarter: 2025Q1

REPORT INFORMATION
  Report Type: Spontaneous
  Country: US (occurrence: US)
  Receive Date: 20250214
  Receipt Date: 20250214
  Transmission Date: 20250409
  Serious: Yes (Other)
  Sender: TEVA
  Company Number: US-TEVA-VS-3296679

PATIENT
  Age: 71 Year
  Sex: Male

DRUGS (1)
  1. AJOVY [Suspect]
     Active Substance: FREMANEZUMAB-VFRM
     Indication: Product used for unknown indication
     Dosage: DOSAGE: 675 MG/ML FORM STRENGTH: 225MG/1.5ML, 225 MG INJECTIONS 90 DAYS #3 X 1.5 ML PEN
     Route: 058

REACTIONS (2)
  - Diabetes mellitus [Unknown]
  - Blood cholesterol abnormal [Unknown]
